FAERS Safety Report 9668305 (Version 1)
Quarter: 2013Q4

REPORT INFORMATION
  Report Type: Spontaneous
  Country: US (occurrence: US)
  Receive Date: 20131104
  Receipt Date: 20131104
  Transmission Date: 20140711
  Serious: No
  Sender: FDA-Public Use
  Company Number: US-PFIZER INC-2013311603

PATIENT
  Age: 49 Year
  Sex: Female
  Weight: 78.01 kg

DRUGS (5)
  1. EFFEXOR XR [Suspect]
     Indication: PARANEOPLASTIC NEUROLOGICAL SYNDROME
     Dosage: UNK
     Route: 048
     Dates: start: 2008
  2. EFFEXOR XR [Suspect]
     Indication: DEPRESSION
     Dosage: 225 MG, 1X/DAY
     Route: 048
     Dates: start: 2011
  3. METFORMIN [Concomitant]
     Indication: TYPE 2 DIABETES MELLITUS
     Dosage: 500 MG, 1X/DAY
  4. BACLOFEN [Concomitant]
     Indication: PARANEOPLASTIC NEUROLOGICAL SYNDROME
     Dosage: 180 MG, 1X/DAY
  5. DIAZEPAM [Concomitant]
     Indication: PARANEOPLASTIC NEUROLOGICAL SYNDROME
     Dosage: 10 MG, DAILY

REACTIONS (2)
  - Drug withdrawal syndrome [Unknown]
  - Off label use [Unknown]
